FAERS Safety Report 21159644 (Version 2)
Quarter: 2022Q3

REPORT INFORMATION
  Report Type: Other
  Country: US (occurrence: None)
  Receive Date: 20220802
  Receipt Date: 20220803
  Transmission Date: 20221026
  Serious: Yes (Other)
  Sender: FDA-Public Use
  Company Number: US-ROCHE-3146980

PATIENT
  Sex: Female

DRUGS (1)
  1. ESBRIET [Suspect]
     Active Substance: PIRFENIDONE
     Indication: Pneumonia
     Dosage: TAKE 1 TABLET BY MOUTH 3 TIMES A DAY WITH FOOD
     Route: 048

REACTIONS (2)
  - Deafness [Unknown]
  - Off label use [Unknown]
